FAERS Safety Report 4379330-8 (Version None)
Quarter: 2004Q2

REPORT INFORMATION
  Report Type: 
  Country: None (occurrence: None)
  Receive Date: 20040610
  Receipt Date: 20031216
  Transmission Date: 20050107
  Serious: Yes (Hospitalization, Other)
  Sender: FDA-Public Use
  Company Number: KII-2003-0011050

PATIENT
  Sex: Female
  Weight: 154.2 kg

DRUGS (2)
  1. OXYCONTIN [Suspect]
     Indication: DRUG USE FOR UNKNOWN INDICATION
     Dosage: 3 UNK, ORAL
     Route: 048
     Dates: start: 20031216
  2. ANTIPSYCHOTICS() [Suspect]
     Indication: DRUG USE FOR UNKNOWN INDICATION
     Dosage: 4 UNK, ORAL
     Route: 048
     Dates: start: 20031216

REACTIONS (6)
  - DEPRESSED LEVEL OF CONSCIOUSNESS [None]
  - MEDICATION ERROR [None]
  - MULTIPLE DRUG OVERDOSE [None]
  - OXYGEN SATURATION DECREASED [None]
  - SINUS TACHYCARDIA [None]
  - SOMNOLENCE [None]
